FAERS Safety Report 4992855-7 (Version None)
Quarter: 2006Q2

REPORT INFORMATION
  Report Type: 
  Country: None (occurrence: None)
  Receive Date: 20060504
  Receipt Date: 20050922
  Transmission Date: 20061013
  Serious: Yes (Death, Hospitalization, Other)
  Sender: FDA-Public Use
  Company Number: US-MERCK-0509USA03311

PATIENT
  Age: 63 Year
  Sex: Male
  Weight: 61 kg

DRUGS (14)
  1. VIOXX [Suspect]
     Indication: PAIN
     Route: 048
  2. VIOXX [Suspect]
     Route: 048
  3. COMBIVENT [Concomitant]
     Route: 065
  4. ATROVENT [Concomitant]
     Route: 065
  5. ALBUTEROL [Concomitant]
     Route: 065
  6. LIPITOR [Concomitant]
     Route: 065
  7. PRINIVIL [Concomitant]
     Route: 065
  8. ASPIRIN [Concomitant]
     Route: 065
  9. AMITRIPTYLINE HYDROCHLORIDE [Concomitant]
     Route: 065
  10. FLOMAX (MORNIFLUMATE) [Concomitant]
     Route: 065
  11. LOZOL [Concomitant]
     Route: 065
  12. K-DUR 10 [Concomitant]
     Route: 065
  13. FLOVENT [Concomitant]
     Route: 065
  14. CHONDROITIN SULFATE SODIUM AND GLUCOSAMINE SULFATE [Concomitant]
     Route: 065

REACTIONS (14)
  - ASTHMA [None]
  - CARDIAC ARREST [None]
  - CARDIAC DISORDER [None]
  - CEREBROVASCULAR ACCIDENT [None]
  - CHEST PAIN [None]
  - CHRONIC OBSTRUCTIVE PULMONARY DISEASE [None]
  - COUGH [None]
  - DEATH [None]
  - EMPHYSEMA [None]
  - HEART INJURY [None]
  - LOSS OF CONSCIOUSNESS [None]
  - MYOCARDIAL INFARCTION [None]
  - PAIN IN EXTREMITY [None]
  - TENDONITIS [None]
